FAERS Safety Report 25786589 (Version 3)
Quarter: 2025Q4

REPORT INFORMATION
  Report Type: Spontaneous
  Country: BR (occurrence: BR)
  Receive Date: 20250910
  Receipt Date: 20251017
  Transmission Date: 20260118
  Serious: No
  Sender: PFIZER
  Company Number: BR-PFIZER INC-PV202500108945

PATIENT
  Age: 12 Year
  Sex: Male

DRUGS (1)
  1. TALIGLUCERASE ALFA [Suspect]
     Active Substance: TALIGLUCERASE ALFA
     Indication: Gaucher^s disease
     Dosage: 2 IU/KG EVERY 15 DAYS
     Route: 042

REACTIONS (2)
  - Pyrexia [Recovered/Resolved]
  - Pain in extremity [Recovering/Resolving]

NARRATIVE: CASE EVENT DATE: 20250904
